FAERS Safety Report 8054524-9 (Version None)
Quarter: 2012Q1

REPORT INFORMATION
  Report Type: 
  Country: None (occurrence: None)
  Receive Date: 20120119
  Receipt Date: 20120109
  Transmission Date: 20120608
  Serious: Yes (Hospitalization, Other)
  Sender: FDA-Public Use
  Company Number: BR-AMGEN-BRASP2012002495

PATIENT
  Age: 57 Year
  Sex: Male
  Weight: 91 kg

DRUGS (6)
  1. SIMVASTATIN [Concomitant]
     Dosage: UNK
     Dates: start: 20111001
  2. ENBREL [Suspect]
     Dosage: 50 MG, WEEKLY
     Route: 058
  3. ATENOLOL [Concomitant]
     Dosage: UNK
     Dates: start: 20111001
  4. ASPIRIN [Concomitant]
     Dosage: UNK
     Dates: start: 20111001
  5. ENBREL [Suspect]
     Indication: RHEUMATOID ARTHRITIS
     Dosage: UNK
     Route: 058
     Dates: start: 20100101
  6. ENALAPRIL MALEATE [Concomitant]
     Dosage: UNK
     Dates: start: 20111001

REACTIONS (9)
  - EYE SWELLING [None]
  - DYSPNOEA [None]
  - SWELLING [None]
  - SWELLING FACE [None]
  - FEELING ABNORMAL [None]
  - CARDIAC DISORDER [None]
  - SWOLLEN TONGUE [None]
  - OEDEMA PERIPHERAL [None]
  - ANAPHYLACTIC REACTION [None]
